FAERS Safety Report 5155728-5 (Version None)
Quarter: 2006Q4

REPORT INFORMATION
  Report Type: 
  Country: None (occurrence: None)
  Receive Date: 20061114
  Receipt Date: 20061106
  Transmission Date: 20070319
  Serious: Yes (Death, Hospitalization)
  Sender: FDA-Public Use
  Company Number: AZAUS200600416

PATIENT
  Sex: Male

DRUGS (2)
  1. VIDAZA [Suspect]
     Indication: MYELODYSPLASTIC SYNDROME
  2. BLOOD PRODUCTS (NOS) (BLOOD AND RELATED PRODUCTS) [Concomitant]

REACTIONS (1)
  - DYSPNOEA [None]
